FAERS Safety Report 13424294 (Version 2)
Quarter: 2017Q2

REPORT INFORMATION
  Report Type: Report from Study
  Country: US (occurrence: US)
  Receive Date: 20170410
  Receipt Date: 20170426
  Transmission Date: 20170830
  Serious: No
  Sender: FDA-Public Use
  Company Number: US-AMGEN-USASL2017051923

PATIENT
  Age: 28 Year
  Sex: Female

DRUGS (1)
  1. ENBREL [Suspect]
     Active Substance: ETANERCEPT
     Indication: RHEUMATOID ARTHRITIS
     Dosage: 50 MG, QWK
     Route: 065

REACTIONS (9)
  - Limb discomfort [Unknown]
  - Paraesthesia [Unknown]
  - Wrong technique in product usage process [Unknown]
  - Chest discomfort [Unknown]
  - Injection site pain [Unknown]
  - Fatigue [Unknown]
  - Myalgia [Unknown]
  - Dysuria [Unknown]
  - Urinary tract infection [Unknown]
